FAERS Safety Report 6108644-6 (Version None)
Quarter: 2009Q1

REPORT INFORMATION
  Report Type: 
  Country: None (occurrence: None)
  Receive Date: 20090305
  Receipt Date: 20090224
  Transmission Date: 20090719
  Serious: Yes (Death, Life-Threatening, Hospitalization)
  Sender: FDA-Public Use
  Company Number: A-CH2009-23763

PATIENT
  Age: 45 Year
  Sex: Female

DRUGS (4)
  1. TRACLEER [Suspect]
     Indication: SKIN ULCER
     Dosage: 125 MG, BID, ORAL, 62.5 MG, BID,ORAL
     Route: 048
     Dates: start: 20050101, end: 20050201
  2. TRACLEER [Suspect]
     Indication: SKIN ULCER
     Dosage: 125 MG, BID, ORAL, 62.5 MG, BID,ORAL
     Route: 048
     Dates: start: 20050201, end: 20090101
  3. ILOPROST [Concomitant]
  4. NIFEDIPINE [Concomitant]

REACTIONS (3)
  - LUNG DISORDER [None]
  - NON-SMALL CELL LUNG CANCER [None]
  - OBSTRUCTIVE AIRWAYS DISORDER [None]
